FAERS Safety Report 6388639-8 (Version None)
Quarter: 2009Q4

REPORT INFORMATION
  Report Type: 
  Country: None (occurrence: None)
  Receive Date: 20091005
  Receipt Date: 20090924
  Transmission Date: 20100525
  Serious: Yes (Hospitalization, Other)
  Sender: FDA-Public Use
  Company Number: US-CELGENEUS-163-21880-09082302

PATIENT
  Sex: Female

DRUGS (3)
  1. REVLIMID [Suspect]
     Indication: MYELODYSPLASTIC SYNDROME
     Route: 048
     Dates: start: 20090820, end: 20090828
  2. BLOOD TRANSFUSION [Concomitant]
     Indication: DRUG USE FOR UNKNOWN INDICATION
     Route: 051
     Dates: start: 20090101
  3. ANTICOAGULATION [Concomitant]
     Route: 065

REACTIONS (3)
  - ARTERITIS [None]
  - CEREBRAL INFARCTION [None]
  - HAEMORRHAGIC CEREBRAL INFARCTION [None]
